FAERS Safety Report 13946513 (Version 6)
Quarter: 2019Q1

REPORT INFORMATION
  Report Type: Spontaneous
  Country: US (occurrence: US)
  Receive Date: 20170907
  Receipt Date: 20190329
  Transmission Date: 20190417
  Serious: Yes (Hospitalization)
  Sender: FDA-Public Use
  Company Number: US-ACTELION-A-US2017-153449

PATIENT
  Age: 57 Year
  Sex: Female

DRUGS (15)
  1. ASPIRIN 81 [Concomitant]
     Active Substance: ASPIRIN
  2. CARVEDIOL [Concomitant]
     Active Substance: CARVEDILOL
     Dosage: 12.5 MG, QD
  3. REMODULIN [Concomitant]
     Active Substance: TREPROSTINIL
     Dosage: UNK
     Dates: start: 20170801
  4. LOSARTAN. [Concomitant]
     Active Substance: LOSARTAN
     Dosage: 100 MG, QD
  5. POTASSIUM CHLORIDE. [Concomitant]
     Active Substance: POTASSIUM CHLORIDE
  6. BUMEX [Concomitant]
     Active Substance: BUMETANIDE
  7. HUMALOG [Concomitant]
     Active Substance: INSULIN LISPRO
  8. SILDENAFIL. [Suspect]
     Active Substance: SILDENAFIL
     Indication: PULMONARY ARTERIAL HYPERTENSION
     Dosage: UNK, TID
     Route: 065
     Dates: start: 201612, end: 20170605
  9. SPIRONOLACTONE. [Concomitant]
     Active Substance: SPIRONOLACTONE
     Dosage: 25 MG, QD
     Dates: start: 20170605
  10. VENTOLIN [Concomitant]
     Active Substance: ALBUTEROL SULFATE
  11. ADCIRCA [Concomitant]
     Active Substance: TADALAFIL
     Dosage: UNK MG, QD
     Dates: start: 20170606
  12. OPSUMIT [Suspect]
     Active Substance: MACITENTAN
     Indication: PULMONARY ARTERIAL HYPERTENSION
     Dosage: 10 MG, QD
     Route: 048
     Dates: start: 20170316
  13. FISH OIL [Concomitant]
     Active Substance: FISH OIL
  14. ALBUTEROL. [Concomitant]
     Active Substance: ALBUTEROL
  15. LANTUS [Concomitant]
     Active Substance: INSULIN GLARGINE

REACTIONS (9)
  - Pain [Recovered/Resolved]
  - Condition aggravated [Not Recovered/Not Resolved]
  - Influenza like illness [Not Recovered/Not Resolved]
  - Pulmonary arterial hypertension [Not Recovered/Not Resolved]
  - Cardiac operation [Unknown]
  - Fatigue [Unknown]
  - Dyspnoea [Unknown]
  - Unevaluable event [Unknown]
  - Oedema peripheral [Recovering/Resolving]

NARRATIVE: CASE EVENT DATE: 201704
